FAERS Safety Report 7201369-5 (Version None)
Quarter: 2010Q4

REPORT INFORMATION
  Report Type: 
  Country: None (occurrence: None)
  Receive Date: 20101229
  Receipt Date: 20101222
  Transmission Date: 20110411
  Serious: Yes (Other)
  Sender: FDA-Public Use
  Company Number: US-JNJFOC-20101208388

PATIENT
  Sex: Female
  Weight: 73.26 kg

DRUGS (2)
  1. RISPERDAL CONSTA [Suspect]
     Indication: SCHIZOPHRENIA, PARANOID TYPE
     Route: 030
  2. DEPAKOTE [Concomitant]
     Route: 065

REACTIONS (4)
  - DRUG INEFFECTIVE [None]
  - ILL-DEFINED DISORDER [None]
  - SKIN DISORDER [None]
  - TARDIVE DYSKINESIA [None]
